FAERS Safety Report 8900654 (Version 1)
Quarter: 2012Q4

REPORT INFORMATION
  Report Type: 
  Country: CA (occurrence: CA)
  Receive Date: 20121109
  Receipt Date: 20121109
  Transmission Date: 20130627
  Serious: Yes (Hospitalization, Other)
  Sender: FDA-Public Use
  Company Number: PHHO2005CA15174

PATIENT
  Sex: Female

DRUGS (17)
  1. SANDOSTATIN LAR (PATIENT BASIS) [Suspect]
     Indication: CARCINOID TUMOUR
     Dosage: 20 mg, every 4 weeks
     Dates: start: 20050729, end: 20051021
  2. SANDOSTATIN LAR (PATIENT BASIS) [Suspect]
     Dosage: 20 mg, every 4 weeks
     Dates: start: 20051117, end: 20060209
  3. SANDOSTATIN LAR (PATIENT BASIS) [Suspect]
     Dosage: UNK mg, QMO
  4. SANDOSTATIN [Suspect]
     Indication: CARCINOID TUMOUR
     Route: 058
     Dates: start: 200511
  5. APO-FUROSEMIDE [Concomitant]
  6. ATIVAN [Concomitant]
  7. CORGARD [Concomitant]
  8. DIABETA [Concomitant]
  9. LIPITOR [Concomitant]
  10. LOSEC [Concomitant]
  11. METFORMIN HYDROCHLORIDE [Concomitant]
  12. PAXIL [Concomitant]
  13. SYNTHROID [Concomitant]
  14. DIOVAN [Concomitant]
  15. CHEMOTHERAPEUTICS,OTHER [Concomitant]
  16. NOVORAPID [Concomitant]
     Dosage: UNK, TID
     Route: 058
  17. NPH-INSULIN [Concomitant]
     Dosage: UNK, QHS

REACTIONS (11)
  - Hepatic neoplasm [Recovered/Resolved]
  - Hyperglycaemia [Unknown]
  - VIIth nerve paralysis [Recovered/Resolved]
  - Hypertension [Unknown]
  - Fatigue [Unknown]
  - Hyperhidrosis [Unknown]
  - Injection site reaction [Unknown]
  - Abdominal distension [Unknown]
  - Headache [Unknown]
  - Abdominal pain [Unknown]
  - Diarrhoea [Unknown]
